FAERS Safety Report 6152158-4 (Version None)
Quarter: 2009Q2

REPORT INFORMATION
  Report Type: 
  Country: None (occurrence: None)
  Receive Date: 20090410
  Receipt Date: 20090403
  Transmission Date: 20091009
  Serious: Yes (Other)
  Sender: FDA-Public Use
  Company Number: US-ALLERGAN-0904595US

PATIENT
  Sex: Female

DRUGS (1)
  1. BOTOX [Suspect]
     Indication: SKIN WRINKLING
     Dosage: UNK, SINGLE
     Route: 030
     Dates: start: 20090330, end: 20090330

REACTIONS (4)
  - DYSPHAGIA [None]
  - FACIAL PARESIS [None]
  - SINUS HEADACHE [None]
  - THROAT TIGHTNESS [None]
